FAERS Safety Report 19153195 (Version 1)
Quarter: 2021Q2

REPORT INFORMATION
  Report Type: Spontaneous
  Country: US (occurrence: US)
  Receive Date: 20210418
  Receipt Date: 20210418
  Transmission Date: 20210717
  Serious: No
  Sender: FDA-Public Use
  Company Number: None

PATIENT
  Age: 61 Year
  Sex: Female
  Weight: 117 kg

DRUGS (6)
  1. ZOLPIDEM TARTATE [Concomitant]
     Active Substance: ZOLPIDEM TARTRATE
  2. ZOLPIDEM TARTRATE 5MG TABLETS [Suspect]
     Active Substance: ZOLPIDEM TARTRATE
     Indication: INSOMNIA
     Dosage: ?          QUANTITY:1 TABLET(S);?
     Route: 048
     Dates: start: 20210303
  3. RAMIPRIL. [Concomitant]
     Active Substance: RAMIPRIL
  4. BUPROPION. [Concomitant]
     Active Substance: BUPROPION
  5. TOPAMAX [Concomitant]
     Active Substance: TOPIRAMATE
  6. ONE A DAY VITAMIN WITH OMEGA [Concomitant]

REACTIONS (2)
  - Product substitution issue [None]
  - Insomnia [None]

NARRATIVE: CASE EVENT DATE: 20210303
